FAERS Safety Report 12753313 (Version 1)
Quarter: 2016Q3

REPORT INFORMATION
  Report Type: Spontaneous
  Country: US (occurrence: US)
  Receive Date: 20160915
  Receipt Date: 20160915
  Transmission Date: 20161109
  Serious: Yes (Hospitalization)
  Sender: FDA-Public Use
  Company Number: US-ASTELLAS-2015US040776

PATIENT
  Age: 76 Year
  Sex: Male

DRUGS (1)
  1. XTANDI [Suspect]
     Active Substance: ENZALUTAMIDE
     Indication: PROSTATE CANCER
     Route: 048
     Dates: start: 201510

REACTIONS (5)
  - Lower gastrointestinal haemorrhage [Unknown]
  - Ageusia [Not Recovered/Not Resolved]
  - Dysgeusia [Recovering/Resolving]
  - Urinary tract infection [Unknown]
  - Alopecia [Recovering/Resolving]

NARRATIVE: CASE EVENT DATE: 201510
